FAERS Safety Report 18376594 (Version 1)
Quarter: 2020Q4

REPORT INFORMATION
  Report Type: Spontaneous
  Country: US (occurrence: US)
  Receive Date: 20201013
  Receipt Date: 20201013
  Transmission Date: 20210114
  Serious: No
  Sender: FDA-Public Use
  Company Number: US-GW PHARMA-202010USGW03458

PATIENT

DRUGS (1)
  1. EPIDIOLEX [Suspect]
     Active Substance: CANNABIDIOL
     Indication: IDIOPATHIC GENERALISED EPILEPSY
     Dosage: 330 MILLIGRAM, BID
     Route: 048
     Dates: start: 20200528, end: 20200923

REACTIONS (4)
  - Product distribution issue [Unknown]
  - Seizure [Unknown]
  - Product dose omission issue [Unknown]
  - Product use in unapproved indication [Unknown]

NARRATIVE: CASE EVENT DATE: 20200924
